FAERS Safety Report 7348289-3 (Version None)
Quarter: 2011Q1

REPORT INFORMATION
  Report Type: 
  Country: None (occurrence: None)
  Receive Date: 20110311
  Receipt Date: 20110228
  Transmission Date: 20110831
  Serious: Yes (Other)
  Sender: FDA-Public Use
  Company Number: US-TEVA-269308USA

PATIENT
  Age: 77 Year
  Sex: Female

DRUGS (7)
  1. LEVOTHYROXINE SODIUM [Concomitant]
  2. RANITIDINE [Concomitant]
  3. ACETYLSALICYLIC ACID [Concomitant]
  4. PACLITAXEL [Suspect]
     Indication: BREAST CANCER
     Route: 042
  5. ERGOCALCIFEROL [Concomitant]
  6. DIPHENHYDRAMINE HCL [Concomitant]
  7. ALENDRONIC ACID [Concomitant]

REACTIONS (2)
  - ADVERSE DRUG REACTION [None]
  - PALMAR-PLANTAR ERYTHRODYSAESTHESIA SYNDROME [None]
